FAERS Safety Report 10086401 (Version 2)
Quarter: 2014Q2

REPORT INFORMATION
  Report Type: Spontaneous
  Country: NL (occurrence: NL)
  Receive Date: 20140418
  Receipt Date: 20140429
  Transmission Date: 20141212
  Serious: Yes (Hospitalization)
  Sender: FDA-Public Use
  Company Number: NL-ASTRAZENECA-2014SE25739

PATIENT
  Age: 15199 Day
  Sex: Male
  Weight: 78 kg

DRUGS (3)
  1. ENTOCORT [Suspect]
     Indication: COLITIS ULCERATIVE
     Route: 048
     Dates: start: 20120215
  2. MIRTAZAPINE [Concomitant]
     Route: 048
     Dates: start: 2001
  3. ORAP [Concomitant]
     Route: 048
     Dates: start: 2000

REACTIONS (1)
  - Osteonecrosis [Not Recovered/Not Resolved]
